FAERS Safety Report 15397445 (Version 1)
Quarter: 2018Q3

REPORT INFORMATION
  Report Type: Spontaneous
  Country: US (occurrence: US)
  Receive Date: 20180913
  Receipt Date: 20180913
  Transmission Date: 20181010
  Serious: Yes (Hospitalization, Disabling, Other)
  Sender: FDA-Public Use
  Company Number: None

PATIENT
  Age: 57 Year
  Sex: Female
  Weight: 52.2 kg

DRUGS (5)
  1. GRALISE [Concomitant]
     Active Substance: GABAPENTIN
  2. PRESCRIPTION VIT D CALCIUM WITH VIT D MAGNESIUM [Concomitant]
  3. GADOVIST [Suspect]
     Active Substance: GADOBUTROL
     Indication: NUCLEAR MAGNETIC RESONANCE IMAGING
     Dates: end: 20180215
  4. DILAUDID [Concomitant]
     Active Substance: HYDROMORPHONE HYDROCHLORIDE
  5. VIT B COMPLEX WITH B12 SUBLINGUAL [Concomitant]

REACTIONS (11)
  - Skin discolouration [None]
  - Sensory disturbance [None]
  - Muscular weakness [None]
  - Neoplasm malignant [None]
  - Blood heavy metal increased [None]
  - Bone pain [None]
  - Skin tightness [None]
  - Headache [None]
  - Pain [None]
  - Chest pain [None]
  - Feeling abnormal [None]

NARRATIVE: CASE EVENT DATE: 20121116
